FAERS Safety Report 8426985-4 (Version None)
Quarter: 2012Q2

REPORT INFORMATION
  Report Type: 
  Country: None (occurrence: None)
  Receive Date: 20120611
  Receipt Date: 20120601
  Transmission Date: 20120825
  Serious: Yes (Other)
  Sender: FDA-Public Use
  Company Number: AU-JNJFOC-20120603152

PATIENT
  Weight: 1.5 kg

DRUGS (1)
  1. STELARA [Suspect]
     Indication: FOETAL EXPOSURE DURING PREGNANCY
     Route: 064
     Dates: end: 20110602

REACTIONS (2)
  - PREMATURE BABY [None]
  - LOW BIRTH WEIGHT BABY [None]
